FAERS Safety Report 23029424 (Version 2)
Quarter: 2023Q4

REPORT INFORMATION
  Report Type: Spontaneous
  Country: CN (occurrence: CN)
  Receive Date: 20231004
  Receipt Date: 20231017
  Transmission Date: 20240110
  Serious: Yes (Life-Threatening, Hospitalization)
  Sender: FDA-Public Use
  Company Number: CN-PFIZER INC-PV202300163690

PATIENT
  Age: 33 Year
  Sex: Female
  Weight: 53 kg

DRUGS (2)
  1. CYTARABINE [Suspect]
     Active Substance: CYTARABINE
     Indication: Acute leukaemia
     Dosage: 1.200 G, 2X/DAY
     Route: 041
     Dates: start: 20230912, end: 20230912
  2. DEXTROSE [Concomitant]
     Active Substance: DEXTROSE\DEXTROSE MONOHYDRATE
     Indication: Acute leukaemia
     Dosage: 500.000 ML, 2X/DAY
     Route: 041
     Dates: start: 20230912, end: 20230912

REACTIONS (5)
  - Shock haemorrhagic [Recovering/Resolving]
  - Myelosuppression [Recovering/Resolving]
  - Uterine haemorrhage [Recovering/Resolving]
  - Asthenia [Recovering/Resolving]
  - Dizziness [Recovering/Resolving]

NARRATIVE: CASE EVENT DATE: 20230923
